FAERS Safety Report 9019393 (Version 1)
Quarter: 2013Q1

REPORT INFORMATION
  Report Type: Spontaneous
  Country: US (occurrence: US)
  Receive Date: 20130118
  Receipt Date: 20130118
  Transmission Date: 20140127
  Serious: No
  Sender: FDA-Public Use
  Company Number: US-SANOFI-AVENTIS-2012SA086373

PATIENT
  Age: 45 Year
  Sex: Female

DRUGS (17)
  1. LASIX [Suspect]
     Route: 048
     Dates: start: 2012, end: 20121105
  2. CAMPRAL [Suspect]
     Indication: ALCOHOL ABUSE
     Route: 048
     Dates: start: 201209, end: 20121104
  3. FLONASE [Concomitant]
  4. OMEPRAZOLE [Concomitant]
  5. SIMVASTATIN [Concomitant]
  6. TRAZODONE [Concomitant]
  7. FLUVOXAMINE [Concomitant]
  8. LAMOTRIGINE [Concomitant]
  9. OXYBUTYNIN [Concomitant]
     Indication: HYPERTONIC BLADDER
  10. XANAX [Concomitant]
  11. HYDROCODONE [Concomitant]
     Dosage: DOSE: 10-325 MG EVERY 8 HOURS
  12. POTASSIUM CHLORIDE [Concomitant]
  13. NOVOLOG [Concomitant]
  14. METOPROLOL [Concomitant]
  15. FOSINOPRIL [Concomitant]
  16. LEVOTHYROXINE [Concomitant]
  17. ESTRADIOL [Concomitant]

REACTIONS (3)
  - Crying [Recovering/Resolving]
  - Muscle spasms [Recovering/Resolving]
  - Thirst [Recovering/Resolving]
